FAERS Safety Report 15125703 (Version 5)
Quarter: 2018Q4

REPORT INFORMATION
  Report Type: Report from Study
  Country: CN (occurrence: CN)
  Receive Date: 20180710
  Receipt Date: 20181018
  Transmission Date: 20190204
  Serious: Yes (Hospitalization)
  Sender: FDA-Public Use
  Company Number: CN-OTSUKA-2018_018900

PATIENT
  Age: 29 Year
  Sex: Female
  Weight: 63.5 kg

DRUGS (4)
  1. CLOZAPINE. [Concomitant]
     Active Substance: CLOZAPINE
     Indication: SCHIZOPHRENIA
     Dosage: 75 MG, BID
     Route: 048
     Dates: start: 20180605
  2. SULPIRIDE [Concomitant]
     Active Substance: SULPIRIDE
     Indication: SCHIZOPHRENIA
     Dosage: 0.1 G, BID
     Route: 048
     Dates: start: 20180503
  3. TRIHEXYPHENIDYL HYDROCHLORIDE. [Concomitant]
     Active Substance: TRIHEXYPHENIDYL HYDROCHLORIDE
     Indication: EXTRAPYRAMIDAL DISORDER
     Dosage: 2 MG, QD (EVERY NIGHT)
     Route: 048
     Dates: start: 20180605
  4. ARIPIPRAZOLE (DUAL CHAMBER) [Suspect]
     Active Substance: ARIPIPRAZOLE
     Indication: SCHIZOPHRENIA
     Dosage: 300 MG, SINGLE
     Route: 030
     Dates: start: 20180315, end: 20180315

REACTIONS (2)
  - Prescribed underdose [Unknown]
  - Schizophrenia [Recovered/Resolved]

NARRATIVE: CASE EVENT DATE: 20180315
